FAERS Safety Report 24365885 (Version 1)
Quarter: 2024Q3

REPORT INFORMATION
  Report Type: Spontaneous
  Country: US (occurrence: US)
  Receive Date: 20240926
  Receipt Date: 20240926
  Transmission Date: 20241017
  Serious: Yes (Other)
  Sender: MYLAN
  Company Number: US-MYLANLABS-2024M1085364

PATIENT
  Age: 60 Year
  Sex: Female

DRUGS (3)
  1. METHOTREXATE [Suspect]
     Active Substance: METHOTREXATE
     Indication: Ocular pemphigoid
     Dosage: UNK
     Route: 065
  2. TACROLIMUS [Suspect]
     Active Substance: TACROLIMUS
     Indication: Ocular pemphigoid
     Dosage: UNK
     Route: 061
  3. LOTEPREDNOL [Suspect]
     Active Substance: LOTEPREDNOL
     Indication: Ocular pemphigoid
     Dosage: UNK
     Route: 061

REACTIONS (3)
  - Sebaceous carcinoma [Unknown]
  - Condition aggravated [Unknown]
  - Glaucoma [Unknown]
